APPROVED DRUG PRODUCT: ALBUTEROL SULFATE
Active Ingredient: ALBUTEROL SULFATE
Strength: EQ 0.5% BASE
Dosage Form/Route: SOLUTION;INHALATION
Application: A073307 | Product #001
Applicant: COPLEY PHARMACEUTICAL INC
Approved: Nov 27, 1991 | RLD: No | RS: No | Type: DISCN